FAERS Safety Report 10128247 (Version 1)
Quarter: 2014Q2

REPORT INFORMATION
  Report Type: Spontaneous
  Country: CH (occurrence: CH)
  Receive Date: 20140428
  Receipt Date: 20140428
  Transmission Date: 20141212
  Serious: Yes (Hospitalization)
  Sender: FDA-Public Use
  Company Number: CH-ROCHE-1385178

PATIENT
  Age: 55 Year
  Sex: Female

DRUGS (6)
  1. ACTEMRA [Suspect]
     Indication: SPONDYLITIS
     Route: 041
     Dates: start: 2012, end: 20140220
  2. OMEZOL [Interacting]
     Indication: PRODUCT USED FOR UNKNOWN INDICATION
     Route: 048
  3. FLAMON [Concomitant]
     Route: 048
  4. CIPRALEX [Concomitant]
     Route: 048
  5. DAFALGAN [Concomitant]
     Route: 048
  6. CO-AMOXICILLIN [Concomitant]
     Indication: BRONCHOPNEUMONIA
     Route: 065
     Dates: end: 20140221

REACTIONS (7)
  - Infectious colitis [Recovered/Resolved]
  - Drug interaction [Unknown]
  - Diarrhoea [Recovered/Resolved]
  - Diarrhoea haemorrhagic [Recovered/Resolved]
  - Vomiting [Recovered/Resolved]
  - Abdominal pain [Recovered/Resolved]
  - Colitis ulcerative [Unknown]
